FAERS Safety Report 22318910 (Version 1)
Quarter: 2023Q2

REPORT INFORMATION
  Report Type: Spontaneous
  Country: GB (occurrence: None)
  Receive Date: 20230515
  Receipt Date: 20230515
  Transmission Date: 20230721
  Serious: Yes (Other)
  Sender: FDA-Public Use
  Company Number: 2023A111862

PATIENT
  Age: 37 Year
  Sex: Female

DRUGS (1)
  1. QUETIAPINE [Suspect]
     Active Substance: QUETIAPINE
     Indication: Psychotic disorder
     Dosage: 25MG AT NIGHT; ;

REACTIONS (2)
  - Sexual dysfunction [Recovered/Resolved]
  - Myoclonus [Recovered/Resolved]
